FAERS Safety Report 19450427 (Version 1)
Quarter: 2021Q2

REPORT INFORMATION
  Report Type: Spontaneous
  Country: US (occurrence: US)
  Receive Date: 20210622
  Receipt Date: 20210622
  Transmission Date: 20210717
  Serious: Yes (Other)
  Sender: FDA-Public Use
  Company Number: US-009507513-2106USA005215

PATIENT
  Sex: Male

DRUGS (15)
  1. KEYTRUDA [Suspect]
     Active Substance: PEMBROLIZUMAB
     Indication: BRAIN NEOPLASM MALIGNANT
     Dosage: UNK
     Dates: start: 20200110
  2. HYDROCODONE/ACETAMINOPHEN [Concomitant]
     Active Substance: ACETAMINOPHEN\HYDROCODONE
  3. KEPPRA [Concomitant]
     Active Substance: LEVETIRACETAM
  4. PROMETHAZINE [Concomitant]
     Active Substance: PROMETHAZINE HYDROCHLORIDE
  5. ONDANSETRON [Concomitant]
     Active Substance: ONDANSETRON
  6. CLONAZEPAM. [Concomitant]
     Active Substance: CLONAZEPAM
  7. CYMBALTA [Concomitant]
     Active Substance: DULOXETINE HYDROCHLORIDE
  8. PROVENTIL [Concomitant]
     Active Substance: ALBUTEROL
  9. DEPAKOTE [Concomitant]
     Active Substance: DIVALPROEX SODIUM
  10. NYSTATIN;TRIAMCINOLONE [Concomitant]
  11. IPRATROPIUM [Concomitant]
     Active Substance: IPRATROPIUM
  12. LEXAPRO [Concomitant]
     Active Substance: ESCITALOPRAM OXALATE
  13. MORPHINE [Concomitant]
     Active Substance: MORPHINE
  14. PROTONIX [OMEPRAZOLE] [Concomitant]
     Active Substance: OMEPRAZOLE
  15. SEROQUEL [Concomitant]
     Active Substance: QUETIAPINE FUMARATE

REACTIONS (1)
  - Malignant neoplasm progression [Unknown]
